FAERS Safety Report 6045246-4 (Version None)
Quarter: 2009Q1

REPORT INFORMATION
  Report Type: 
  Country: None (occurrence: None)
  Receive Date: 20090121
  Receipt Date: 20090108
  Transmission Date: 20090719
  Serious: Yes (Other)
  Sender: FDA-Public Use
  Company Number: PHHY2008DE24850

PATIENT
  Sex: Female
  Weight: 66 kg

DRUGS (5)
  1. MYFORTIC [Suspect]
     Indication: UVEITIS
     Dosage: 1 DF, BID
     Route: 048
     Dates: start: 20080101, end: 20080101
  2. MYFORTIC [Suspect]
     Dosage: 720 MG, BID
     Dates: start: 20080101
  3. MYFORTIC [Suspect]
     Dosage: 360MG, BID
     Route: 048
  4. PREDNISOLONE [Concomitant]
     Indication: UVEITIS
     Dosage: 10 MG PER DAY
     Route: 048
     Dates: start: 20080101
  5. LEVOTHYROXINE SODIUM [Concomitant]

REACTIONS (6)
  - BLOOD PRESSURE DECREASED [None]
  - CARDIOVASCULAR DISORDER [None]
  - DIARRHOEA [None]
  - HYPERTENSION [None]
  - TINNITUS [None]
  - WEIGHT DECREASED [None]
